FAERS Safety Report 6364308-5 (Version None)
Quarter: 2009Q3

REPORT INFORMATION
  Report Type: 
  Country: None (occurrence: None)
  Receive Date: 20090919
  Receipt Date: 20090717
  Transmission Date: 20100115
  Serious: No
  Sender: FDA-Public Use
  Company Number: US-ABBOTT-09P-163-0586678-00

PATIENT
  Sex: Male
  Weight: 93.07 kg

DRUGS (2)
  1. HUMIRA [Suspect]
     Indication: PSORIASIS
     Dates: start: 20080901, end: 20090101
  2. HUMIRA [Suspect]
     Dates: start: 20090101

REACTIONS (3)
  - ARTHRALGIA [None]
  - FATIGUE [None]
  - HYPERHIDROSIS [None]
